FAERS Safety Report 5275279-7 (Version None)
Quarter: 2007Q1

REPORT INFORMATION
  Report Type: 
  Country: None (occurrence: None)
  Receive Date: 20061213
  Receipt Date: 20050927
  Transmission Date: 20070707
  Serious: Yes (Hospitalization)
  Sender: FDA-Public Use
  Company Number: 2005UW12600

PATIENT
  Age: 43 Year
  Sex: Female

DRUGS (7)
  1. SEROQUEL [Suspect]
     Indication: BIPOLAR II DISORDER
     Dosage: 25 MG QAM PO
     Route: 048
     Dates: start: 20050802, end: 20050801
  2. SEROQUEL [Suspect]
     Indication: BIPOLAR II DISORDER
     Dosage: 150 MG QAM PO
     Route: 048
     Dates: start: 20050801, end: 20050801
  3. EFFEXOR XR [Concomitant]
  4. LAMICTAL [Concomitant]
  5. TRAZODONE HCL [Concomitant]
  6. PRAZOSIN HCL [Concomitant]
  7. PRILOSEC [Concomitant]

REACTIONS (3)
  - DYSPHAGIA [None]
  - DYSPNOEA [None]
  - DYSTONIA [None]
